FAERS Safety Report 7663147-2 (Version None)
Quarter: 2011Q3

REPORT INFORMATION
  Report Type: 
  Country: None (occurrence: None)
  Receive Date: 20110805
  Receipt Date: 20100823
  Transmission Date: 20111222
  Serious: No
  Sender: FDA-Public Use
  Company Number: US-ABBOTT-10P-163-0666120-00

PATIENT
  Sex: Female
  Weight: 90.8 kg

DRUGS (3)
  1. BENAZEPRIL HYDROCHLORIDE [Concomitant]
     Indication: HYPERTENSION
     Dosage: DOSE UNKNOWN
  2. BAYER COATED ASPIRIN [Concomitant]
     Indication: PROPHYLAXIS
     Route: 048
  3. NIASPAN [Suspect]
     Indication: BLOOD TRIGLYCERIDES INCREASED
     Route: 048
     Dates: start: 20100801

REACTIONS (3)
  - WRONG TECHNIQUE IN DRUG USAGE PROCESS [None]
  - MEDICATION RESIDUE [None]
  - FLUSHING [None]
